FAERS Safety Report 25787374 (Version 1)
Quarter: 2025Q3

REPORT INFORMATION
  Report Type: Spontaneous
  Country: US (occurrence: US)
  Receive Date: 20250910
  Receipt Date: 20250910
  Transmission Date: 20251020
  Serious: No
  Sender: BRISTOL-MYERS SQUIBB COMPANY
  Company Number: US-BRISTOL-MYERS SQUIBB COMPANY-2025-125010

PATIENT
  Age: 29 Year
  Sex: Male
  Weight: 88.45 kg

DRUGS (1)
  1. COBENFY [Suspect]
     Active Substance: TROSPIUM CHLORIDE\XANOMELINE
     Indication: Schizophrenia
     Dosage: 50/20 MG
     Dates: start: 202502

REACTIONS (5)
  - Food allergy [Unknown]
  - Rash [Unknown]
  - Urticaria [Unknown]
  - Burning sensation [Unknown]
  - Illness [Unknown]
